FAERS Safety Report 6604008-7 (Version None)
Quarter: 2010Q1

REPORT INFORMATION
  Report Type: 
  Country: None (occurrence: None)
  Receive Date: 20100226
  Receipt Date: 20090413
  Transmission Date: 20100710
  Serious: No
  Sender: FDA-Public Use
  Company Number: A0778448A

PATIENT
  Age: 76 Year
  Sex: Female

DRUGS (6)
  1. LAMICTAL CD [Suspect]
     Dosage: 150MG TWICE PER DAY
     Route: 048
     Dates: start: 20000101, end: 20090201
  2. HEART MEDICATION [Concomitant]
  3. LIPITOR [Concomitant]
  4. ASPIRIN [Concomitant]
  5. PREMARIN [Concomitant]
  6. BLOOD PRESSURE MEDICATION [Concomitant]

REACTIONS (1)
  - RASH [None]
